FAERS Safety Report 23245088 (Version 1)
Quarter: 2023Q4

REPORT INFORMATION
  Report Type: Report from Study
  Country: US (occurrence: US)
  Receive Date: 20231130
  Receipt Date: 20231130
  Transmission Date: 20240110
  Serious: No
  Sender: FDA-Public Use
  Company Number: US-ACADIA PHARMACEUTICALS INC.-ACA-2023-TRF-005125

PATIENT
  Sex: Female

DRUGS (2)
  1. DAYBUE [Suspect]
     Active Substance: TROFINETIDE
     Indication: Rett syndrome
     Dosage: 40 MILLILITER, BID VIA G-TUBE
  2. AMOXICILLIN [Suspect]
     Active Substance: AMOXICILLIN
     Dosage: BID FOR 7 DAYS

REACTIONS (5)
  - Upper respiratory tract infection [Recovered/Resolved]
  - Lethargy [Not Recovered/Not Resolved]
  - Somnolence [Not Recovered/Not Resolved]
  - Secretion discharge [Not Recovered/Not Resolved]
  - Diarrhoea [Recovered/Resolved]
